FAERS Safety Report 9158461 (Version 1)
Quarter: 2013Q1

REPORT INFORMATION
  Report Type: Spontaneous
  Country: US (occurrence: US)
  Receive Date: 20130312
  Receipt Date: 20130312
  Transmission Date: 20140127
  Serious: Yes (Other)
  Sender: FDA-Public Use
  Company Number: US-BAYER-2013-027534

PATIENT
  Sex: Female

DRUGS (1)
  1. CIPRO [Suspect]
     Indication: KIDNEY INFECTION
     Dosage: 250 MG, BID
     Dates: start: 20110801, end: 20110812

REACTIONS (5)
  - Colon neoplasm [Not Recovered/Not Resolved]
  - Intestinal obstruction [None]
  - Diarrhoea haemorrhagic [Not Recovered/Not Resolved]
  - Constipation [Not Recovered/Not Resolved]
  - Off label use [Not Recovered/Not Resolved]
